FAERS Safety Report 9194085 (Version 2)
Quarter: 2013Q2

REPORT INFORMATION
  Report Type: Spontaneous
  Country: CZ (occurrence: CZ)
  Receive Date: 20130327
  Receipt Date: 20130403
  Transmission Date: 20140414
  Serious: Yes (Death)
  Sender: FDA-Public Use
  Company Number: CZ-ELI_LILLY_AND_COMPANY-CZ201303007162

PATIENT
  Age: 84 Year
  Sex: Female

DRUGS (3)
  1. FORSTEO [Suspect]
     Indication: OSTEOPOROSIS POSTMENOPAUSAL
     Dosage: 20 UG, QD
     Route: 058
     Dates: start: 20110718
  2. PERINDOPRIL [Concomitant]
  3. BISOPROLOL [Concomitant]
     Indication: MYOCARDIAL ISCHAEMIA

REACTIONS (3)
  - Nosocomial infection [Fatal]
  - Cardiac disorder [Unknown]
  - Gastrointestinal disorder [Unknown]
